FAERS Safety Report 15406010 (Version 4)
Quarter: 2019Q2

REPORT INFORMATION
  Report Type: Spontaneous
  Country: US (occurrence: US)
  Receive Date: 20180920
  Receipt Date: 20190417
  Transmission Date: 20190711
  Serious: No
  Sender: FDA-Public Use
  Company Number: US-PFIZER INC-2018372561

PATIENT
  Age: 6 Year
  Sex: Male
  Weight: 16.33 kg

DRUGS (4)
  1. QUILLIVANT XR [Suspect]
     Active Substance: METHYLPHENIDATE HYDROCHLORIDE
     Indication: ATTENTION DEFICIT/HYPERACTIVITY DISORDER
     Dosage: 4 ML, ONCE DAILY
     Route: 048
     Dates: start: 20180905, end: 20180912
  2. QUILLIVANT XR [Suspect]
     Active Substance: METHYLPHENIDATE HYDROCHLORIDE
     Dosage: 1.5 ML, DAILY
     Dates: start: 20180913, end: 20180913
  3. TRILEPTAL [Concomitant]
     Active Substance: OXCARBAZEPINE
     Dosage: 3 ML, 2X/DAY
     Route: 048
     Dates: start: 20180502
  4. DEXAMETHASONE. [Concomitant]
     Active Substance: DEXAMETHASONE
     Indication: PRODUCT USED FOR UNKNOWN INDICATION
     Dosage: UNK
     Route: 048

REACTIONS (6)
  - Headache [Unknown]
  - Anger [Not Recovered/Not Resolved]
  - Atypical pneumonia [Unknown]
  - Somnambulism [Not Recovered/Not Resolved]
  - Hypersomnia [Not Recovered/Not Resolved]
  - Syncope [Recovered/Resolved]

NARRATIVE: CASE EVENT DATE: 20180905
